FAERS Safety Report 4377648-6 (Version None)
Quarter: 2004Q2

REPORT INFORMATION
  Report Type: 
  Country: None (occurrence: None)
  Receive Date: 20040601
  Receipt Date: 20040129
  Transmission Date: 20050107
  Serious: No
  Sender: FDA-Public Use
  Company Number: WAES 0401USA00604

PATIENT
  Age: 66 Year
  Sex: Female

DRUGS (2)
  1. ZETIA [Suspect]
     Indication: BLOOD CHOLESTEROL INCREASED
     Dosage: 10MG/DAILY/PO
     Route: 048
     Dates: start: 20030301, end: 20030601
  2. ZETIA [Suspect]
     Indication: DYSLIPIDAEMIA
     Dosage: 10MG/DAILY/PO
     Route: 048
     Dates: start: 20030301, end: 20030601

REACTIONS (2)
  - MUSCULAR WEAKNESS [None]
  - MYALGIA [None]
